FAERS Safety Report 20106400 (Version 1)
Quarter: 2021Q4

REPORT INFORMATION
  Report Type: Other
  Country: US (occurrence: None)
  Receive Date: 20211124
  Receipt Date: 20211124
  Transmission Date: 20220303
  Serious: Yes (Other)
  Sender: FDA-Public Use
  Company Number: US-ROCHE-2959982

PATIENT
  Age: 77 Year
  Sex: Female

DRUGS (9)
  1. OCREVUS [Suspect]
     Active Substance: OCRELIZUMAB
     Indication: Relapsing multiple sclerosis
     Dosage: ONGOING YES?STRENGTH: 30/MG/ML?DATE OF TREATMENT: 29/JUL/2021
     Route: 042
     Dates: start: 20171115
  2. BACLOFEN [Concomitant]
     Active Substance: BACLOFEN
  3. DULOXETINE [Concomitant]
     Active Substance: DULOXETINE
  4. LOVASTATIN [Concomitant]
     Active Substance: LOVASTATIN
  5. METFORMIN [Concomitant]
     Active Substance: METFORMIN HYDROCHLORIDE
  6. NOVOLOG [Concomitant]
     Active Substance: INSULIN ASPART
  7. OXYBUTYNIN [Concomitant]
     Active Substance: OXYBUTYNIN
  8. TYLENOL EXTRA STRENGTH [Concomitant]
     Active Substance: ACETAMINOPHEN
  9. VITAMIN D2 [Concomitant]
     Active Substance: ERGOCALCIFEROL

REACTIONS (2)
  - Diverticulitis [Not Recovered/Not Resolved]
  - Memory impairment [Unknown]

NARRATIVE: CASE EVENT DATE: 20211111
